FAERS Safety Report 25768505 (Version 2)
Quarter: 2025Q4

REPORT INFORMATION
  Report Type: Spontaneous
  Country: JP (occurrence: JP)
  Receive Date: 20250905
  Receipt Date: 20251015
  Transmission Date: 20260118
  Serious: Yes (Hospitalization, Other)
  Sender: TAIHO ONCOLOGY INC
  Company Number: JP-TAIHOP-2025-009432

PATIENT
  Age: 72 Year
  Sex: Male

DRUGS (1)
  1. LONSURF [Suspect]
     Active Substance: TIPIRACIL HYDROCHLORIDE\TRIFLURIDINE
     Indication: Gastric cancer
     Dosage: DOSE, FREQUENCY, FORM STRENGTH UNKNOWN.?SIXTH-LINE THERAPY, 4 COURSES OF TRIFLURIDINE AND TIPIRACIL
     Route: 048
     Dates: start: 20211110, end: 20220205

REACTIONS (3)
  - Oesophageal perforation [Unknown]
  - Pneumothorax [Unknown]
  - Infectious pleural effusion [Not Recovered/Not Resolved]
